FAERS Safety Report 4422928-9 (Version None)
Quarter: 2004Q3

REPORT INFORMATION
  Report Type: 
  Country: None (occurrence: None)
  Receive Date: 20040811
  Receipt Date: 20040730
  Transmission Date: 20050211
  Serious: Yes (Life-Threatening, Other)
  Sender: FDA-Public Use
  Company Number: AT-AMGEN-UK085683

PATIENT
  Sex: Female
  Weight: 95 kg

DRUGS (5)
  1. NEULASTA [Suspect]
     Indication: CHEMOTHERAPY
     Route: 058
     Dates: start: 20040708, end: 20040708
  2. NAVOBAN [Concomitant]
     Route: 048
     Dates: start: 20040707, end: 20040712
  3. DEXAMETHASONE [Concomitant]
     Route: 048
     Dates: start: 20040706, end: 20040708
  4. EPIRUBICIN [Concomitant]
     Route: 042
     Dates: start: 20040707, end: 20040707
  5. TAXOTERE [Concomitant]
     Route: 042
     Dates: start: 20040707, end: 20040707

REACTIONS (3)
  - BONE PAIN [None]
  - DYSPNOEA [None]
  - FLUSHING [None]
